FAERS Safety Report 26184035 (Version 1)
Quarter: 2025Q4

REPORT INFORMATION
  Report Type: Spontaneous
  Country: US (occurrence: US)
  Receive Date: 20251222
  Receipt Date: 20251222
  Transmission Date: 20260118
  Serious: Yes (Life-Threatening, Hospitalization, Other)
  Sender: STRIDES
  Company Number: US-STRIDES ARCOLAB LIMITED-2025SP015774

PATIENT
  Age: 41 Year
  Sex: Male

DRUGS (2)
  1. AMLODIPINE [Suspect]
     Active Substance: AMLODIPINE BESYLATE
     Indication: Hypertension
     Dosage: 10 MG
     Route: 065
  2. CHLORTHALIDONE [Suspect]
     Active Substance: CHLORTHALIDONE
     Indication: Hypertension
     Dosage: 25 MG
     Route: 065

REACTIONS (16)
  - Haemodynamic instability [Recovered/Resolved]
  - Atelectasis [Recovering/Resolving]
  - Pleural effusion [Recovering/Resolving]
  - Pulmonary artery dilatation [Recovering/Resolving]
  - Pulmonary embolism [Recovering/Resolving]
  - Alveolar-arterial oxygen gradient increased [Recovering/Resolving]
  - Ventilation perfusion mismatch [Recovering/Resolving]
  - Lung diffusion disorder [Recovering/Resolving]
  - Lung disorder [Recovering/Resolving]
  - Vasodilatation [Recovering/Resolving]
  - Hypoxia [Recovered/Resolved]
  - Vasoconstriction [Recovering/Resolving]
  - Hypotension [Recovering/Resolving]
  - Intentional product misuse [Unknown]
  - Toxicity to various agents [Unknown]
  - Intentional overdose [Unknown]
